FAERS Safety Report 10462413 (Version 1)
Quarter: 2014Q3

REPORT INFORMATION
  Report Type: Report from Study
  Country: US (occurrence: US)
  Receive Date: 20140918
  Receipt Date: 20140918
  Transmission Date: 20150326
  Serious: Yes (Hospitalization)
  Sender: FDA-Public Use
  Company Number: US-TAKEDA-2014MPI002435

PATIENT
  Age: 77 Year
  Weight: 77.98 kg

DRUGS (2)
  1. VELCADE [Suspect]
     Active Substance: BORTEZOMIB
     Indication: PLASMA CELL MYELOMA
     Dosage: 2.2 MG/M2, 2X WEEKLY, DAY 1 AND 4 EVERY 7 DAY, 1 WEEK OFF EVERY 14 DAY
     Route: 042
     Dates: start: 20100406, end: 20100615
  2. DECADRON [Suspect]
     Active Substance: DEXAMETHASONE
     Indication: PLASMA CELL MYELOMA
     Dosage: 40 MG, Q3WEEKS
     Route: 048
     Dates: start: 20100406, end: 20100615

REACTIONS (3)
  - Pneumonia [Unknown]
  - Immunosuppression [Unknown]
  - Conjunctivitis [Unknown]

NARRATIVE: CASE EVENT DATE: 20100604
